FAERS Safety Report 8902037 (Version 2)
Quarter: 2012Q4

REPORT INFORMATION
  Report Type: Report from Study
  Country: FR (occurrence: FR)
  Receive Date: 20121112
  Receipt Date: 20121128
  Transmission Date: 20130627
  Serious: Yes (Death, Hospitalization)
  Sender: FDA-Public Use
  Company Number: PHHO2012FR015473

PATIENT
  Age: 74 Year
  Sex: Male

DRUGS (2)
  1. AFINITOR [Suspect]
     Indication: RENAL CANCER METASTATIC
     Dosage: 10 mg, QD
     Route: 048
     Dates: start: 20120726, end: 20121104
  2. DUROGESIC [Suspect]

REACTIONS (7)
  - Melaena [Not Recovered/Not Resolved]
  - Rectal haemorrhage [Not Recovered/Not Resolved]
  - Neoplasm malignant [Fatal]
  - Malignant neoplasm progression [Fatal]
  - Vomiting [Recovered/Resolved]
  - Constipation [Recovered/Resolved]
  - Eating disorder [Recovered/Resolved]
